FAERS Safety Report 12330024 (Version 2)
Quarter: 2016Q2

REPORT INFORMATION
  Report Type: Spontaneous
  Country: TR (occurrence: TR)
  Receive Date: 20160504
  Receipt Date: 20160511
  Transmission Date: 20160815
  Serious: Yes (Hospitalization, Other)
  Sender: FDA-Public Use
  Company Number: TR-AMGEN-TURSP2016054756

PATIENT
  Age: 68 Year
  Sex: Male

DRUGS (4)
  1. ROCALTROL [Concomitant]
     Active Substance: CALCITRIOL
     Indication: HYPERPARATHYROIDISM
     Dosage: 0.5 MG, QD
  2. VASOXEN [Concomitant]
     Indication: MYOCARDIAL ISCHAEMIA
     Dosage: 5 MG, QD
  3. ARANESP [Suspect]
     Active Substance: DARBEPOETIN ALFA
     Indication: NEPHROGENIC ANAEMIA
     Dosage: 2 TO 3 TIMES A YEAR
     Route: 058
     Dates: start: 2011, end: 2016
  4. CIPRALEX [Concomitant]
     Active Substance: ESCITALOPRAM OXALATE
     Indication: DEPRESSION
     Dosage: 20 MG, QD

REACTIONS (3)
  - Aplasia pure red cell [Unknown]
  - Bicytopenia [Not Recovered/Not Resolved]
  - Therapeutic response decreased [Unknown]
